FAERS Safety Report 4612410-8 (Version None)
Quarter: 2005Q1

REPORT INFORMATION
  Report Type: 
  Country: None (occurrence: None)
  Receive Date: 20050316
  Receipt Date: 20050228
  Transmission Date: 20050727
  Serious: Yes (Hospitalization)
  Sender: FDA-Public Use
  Company Number: T05-USA-00114-01

PATIENT
  Age: 43 Year
  Sex: Female
  Weight: 76.2043 kg

DRUGS (29)
  1. LEXAPRO                 (ESCITALOPRAM) [Suspect]
     Indication: DEPRESSION
     Dosage: 10 MG QD PO
     Route: 048
     Dates: start: 20040710
  2. LEXAPRO                 (ESCITALOPRAM) [Suspect]
     Indication: DISEASE RECURRENCE
     Dosage: 10 MG QD PO
     Route: 048
     Dates: start: 20040710
  3. LEXAPRO                 (ESCITALOPRAM) [Suspect]
     Indication: HEPATITIS C
     Dosage: 10 MG QD PO
     Route: 048
     Dates: start: 20040710
  4. LEXAPRO                 (ESCITALOPRAM) [Suspect]
     Indication: PROPHYLAXIS
     Dosage: 10 MG QD PO
     Route: 048
     Dates: start: 20040710
  5. LEXAPRO [Suspect]
     Indication: DEPRESSION
     Dosage: 5 MG QD PO
     Route: 048
     Dates: start: 20040624, end: 20040709
  6. LEXAPRO [Suspect]
     Indication: DISEASE RECURRENCE
     Dosage: 5 MG QD PO
     Route: 048
     Dates: start: 20040624, end: 20040709
  7. LEXAPRO [Suspect]
     Indication: HEPATITIS C
     Dosage: 5 MG QD PO
     Route: 048
     Dates: start: 20040624, end: 20040709
  8. LEXAPRO [Suspect]
     Indication: PROPHYLAXIS
     Dosage: 5 MG QD PO
     Route: 048
     Dates: start: 20040624, end: 20040709
  9. LEXAPRO [Suspect]
     Indication: DEPRESSION
     Dosage: 10 MG QD PO
     Route: 048
     Dates: start: 20040513, end: 20040623
  10. LEXAPRO [Suspect]
     Indication: DISEASE RECURRENCE
     Dosage: 10 MG QD PO
     Route: 048
     Dates: start: 20040513, end: 20040623
  11. LEXAPRO [Suspect]
     Indication: HEPATITIS C
     Dosage: 10 MG QD PO
     Route: 048
     Dates: start: 20040513, end: 20040623
  12. LEXAPRO [Suspect]
     Indication: PROPHYLAXIS
     Dosage: 10 MG QD PO
     Route: 048
     Dates: start: 20040513, end: 20040623
  13. MULTI-VITAMIN [Concomitant]
  14. CALCIUM GLUCONATE [Concomitant]
  15. PEGINTERFERON ALPHA (PEGINTERFERON ALFA-2A) [Concomitant]
  16. RIBAVIRIN [Concomitant]
  17. DOXYCYCLINE [Concomitant]
  18. TRAZODONE HCL [Concomitant]
  19. NEXIUM [Concomitant]
  20. TYLENOL [Concomitant]
  21. GENERIC SLEEP AID [Concomitant]
  22. IBUPROFEN [Concomitant]
  23. PEPTO-BISMOL [Concomitant]
  24. TYLENOL PM [Concomitant]
  25. OTC ANTI-NAUSEA LIQUID [Concomitant]
  26. OTC ANTACID [Concomitant]
  27. ADVIL [Concomitant]
  28. LORTAB [Concomitant]
  29. ULTRAM [Concomitant]

REACTIONS (26)
  - ABDOMINAL PAIN LOWER [None]
  - ABDOMINAL TENDERNESS [None]
  - ADNEXA UTERI MASS [None]
  - BACK PAIN [None]
  - BLOOD CHLORIDE DECREASED [None]
  - BLOOD PRESSURE DIASTOLIC DECREASED [None]
  - BLOOD UREA INCREASED [None]
  - BRONCHITIS [None]
  - COUGH [None]
  - GINGIVAL PAIN [None]
  - HAEMATOCHEZIA [None]
  - HEADACHE [None]
  - HEART RATE INCREASED [None]
  - LUNG DISORDER [None]
  - NEUTROPENIA [None]
  - NORMOCHROMIC NORMOCYTIC ANAEMIA [None]
  - OVARIAN NEOPLASM [None]
  - PANCYTOPENIA [None]
  - PELVIC PAIN [None]
  - PRURITUS [None]
  - RALES [None]
  - RECTAL HAEMORRHAGE [None]
  - RESPIRATORY RATE INCREASED [None]
  - UTERINE ENLARGEMENT [None]
  - UTERINE MASS [None]
  - WHITE BLOOD CELL COUNT DECREASED [None]
